FAERS Safety Report 13910889 (Version 1)
Quarter: 2017Q3

REPORT INFORMATION
  Report Type: Spontaneous
  Country: US (occurrence: None)
  Receive Date: 20170825
  Receipt Date: 20170825
  Transmission Date: 20171127
  Serious: Yes (Death)
  Sender: FDA-Public Use
  Company Number: None

PATIENT
  Age: 79 Year
  Sex: Female
  Weight: 61.23 kg

DRUGS (13)
  1. METOPROLOL. [Concomitant]
     Active Substance: METOPROLOL
  2. COUMADIN [Concomitant]
     Active Substance: WARFARIN SODIUM
  3. DICHOFENAC [Concomitant]
  4. NEXIUM [Concomitant]
     Active Substance: ESOMEPRAZOLE MAGNESIUM
  5. SIMVASTATIN. [Concomitant]
     Active Substance: SIMVASTATIN
  6. PLAVIX [Concomitant]
     Active Substance: CLOPIDOGREL BISULFATE
  7. FLAGAL [Concomitant]
  8. ATACAND [Concomitant]
     Active Substance: CANDESARTAN CILEXETIL
  9. ULORIC [Suspect]
     Active Substance: FEBUXOSTAT
     Indication: GOUT
  10. LASIX [Concomitant]
     Active Substance: FUROSEMIDE
  11. COLANZEPAM [Concomitant]
  12. TYLENOL ARTHRITIS PAIN [Concomitant]
     Active Substance: ACETAMINOPHEN
  13. LEXAPRO [Concomitant]
     Active Substance: ESCITALOPRAM OXALATE

REACTIONS (5)
  - Loss of consciousness [None]
  - Brain stem stroke [None]
  - Renal failure [None]
  - Respiratory failure [None]
  - Cardiac failure [None]

NARRATIVE: CASE EVENT DATE: 200910
